FAERS Safety Report 4938982-1 (Version None)
Quarter: 2006Q1

REPORT INFORMATION
  Report Type: 
  Country: None (occurrence: None)
  Receive Date: 20060309
  Receipt Date: 20050218
  Transmission Date: 20060701
  Serious: Yes (Hospitalization, Disabling)
  Sender: FDA-Public Use
  Company Number: US-MERCK-0502USA02917

PATIENT
  Age: 66 Year
  Sex: Male
  Weight: 84 kg

DRUGS (4)
  1. VIOXX [Suspect]
     Indication: ARTHRITIS
     Route: 048
     Dates: start: 19990101, end: 20040901
  2. NEXIUM [Concomitant]
     Route: 065
  3. PROTONIX [Concomitant]
     Route: 065
  4. ZYRTEC [Concomitant]
     Route: 065

REACTIONS (4)
  - ARTHROPATHY [None]
  - GASTROOESOPHAGEAL REFLUX DISEASE [None]
  - HAEMORRHAGIC STROKE [None]
  - HYPERTENSION [None]
